FAERS Safety Report 9204338 (Version 1)
Quarter: 2013Q1

REPORT INFORMATION
  Report Type: Spontaneous
  Country: US (occurrence: None)
  Receive Date: 20120709
  Receipt Date: 20120709
  Transmission Date: 20140127
  Serious: No
  Sender: FDA-Public Use
  Company Number: 2012HGS-003412

PATIENT
  Age: 32 Year
  Sex: Female
  Weight: 57.15 kg

DRUGS (3)
  1. BENLYSTA [Suspect]
     Route: 041
     Dates: start: 20110527
  2. PREDNISONE (PREDNISONE) (PREDNISONE) [Concomitant]
  3. MOBIC (MELOXICAM) (MELOXICAM) [Concomitant]

REACTIONS (4)
  - Weight increased [None]
  - Eczema [None]
  - Systemic lupus erythematosus rash [None]
  - Dermatitis atopic [None]
